FAERS Safety Report 9351703 (Version 1)
Quarter: 2013Q2

REPORT INFORMATION
  Report Type: Other
  Country: GB (occurrence: GB)
  Receive Date: 20130617
  Receipt Date: 20130617
  Transmission Date: 20140414
  Serious: Yes (Other)
  Sender: FDA-Public Use
  Company Number: GB-WATSON-2013-10824

PATIENT
  Sex: Female

DRUGS (1)
  1. VERAPAMIL HYDROCHLORIDE (WATSON LABORATORIES) (VERAPAMIL HYDROCHLORIDE) UNKNOWN, UNK UNK [Suspect]
     Indication: PRODUCT USED FOR UNKNOWN INDICATION
     Dosage: UNK
     Route: 048
     Dates: end: 20130517

REACTIONS (3)
  - Circulatory collapse [Recovered/Resolved]
  - Blood lactic acid increased [Recovered/Resolved]
  - Bradycardia [Recovered/Resolved]
